FAERS Safety Report 4925225-8 (Version None)
Quarter: 2006Q1

REPORT INFORMATION
  Report Type: 
  Country: None (occurrence: None)
  Receive Date: 20060228
  Receipt Date: 20060220
  Transmission Date: 20060701
  Serious: Yes (Life-Threatening)
  Sender: FDA-Public Use
  Company Number: FR-NOVOPROD-250998

PATIENT
  Age: 71 Year
  Sex: Male

DRUGS (6)
  1. NOVONORM [Suspect]
     Indication: DIABETES MELLITUS NON-INSULIN-DEPENDENT
     Dates: start: 20060101
  2. METFORMIN [Concomitant]
     Indication: DIABETES MELLITUS NON-INSULIN-DEPENDENT
     Dates: start: 20030101, end: 20060101
  3. METFORMIN [Concomitant]
     Dates: start: 20060101
  4. CLARITHROMYCIN [Concomitant]
     Indication: GASTRIC ULCER
     Dosage: 2 G, QD
     Route: 048
     Dates: start: 20060101
  5. AMOXICILLIN [Concomitant]
     Indication: GASTRIC ULCER
     Dosage: 1 G, QD
     Route: 048
     Dates: start: 20060101
  6. NEXIUM [Concomitant]

REACTIONS (2)
  - ANGIONEUROTIC OEDEMA [None]
  - GASTRIC ULCER HELICOBACTER [None]
